FAERS Safety Report 20696750 (Version 1)
Quarter: 2022Q2

REPORT INFORMATION
  Report Type: Spontaneous
  Country: US (occurrence: US)
  Receive Date: 20220411
  Receipt Date: 20220411
  Transmission Date: 20220720
  Serious: Yes (Other)
  Sender: FDA-Public Use
  Company Number: US-PFIZER INC-202200512585

PATIENT
  Sex: Male

DRUGS (1)
  1. LATANOPROST [Suspect]
     Active Substance: LATANOPROST
     Indication: Glaucoma
     Dosage: 1 DROP IN EACH EYE
     Route: 047

REACTIONS (3)
  - Cataract [Unknown]
  - Foreign body sensation in eyes [Not Recovered/Not Resolved]
  - Eye irritation [Not Recovered/Not Resolved]
